FAERS Safety Report 9304880 (Version 1)
Quarter: 2013Q2

REPORT INFORMATION
  Report Type: Spontaneous
  Country: US (occurrence: None)
  Receive Date: 20130521
  Receipt Date: 20130521
  Transmission Date: 20140414
  Serious: No
  Sender: FDA-Public Use
  Company Number: None

PATIENT
  Age: 24 Year
  Sex: Female
  Weight: 59.1 kg

DRUGS (1)
  1. MIRENA [Suspect]

REACTIONS (3)
  - Depression [None]
  - Suicidal ideation [None]
  - Back pain [None]
